FAERS Safety Report 18894311 (Version 2)
Quarter: 2021Q1

REPORT INFORMATION
  Report Type: Report from Study
  Country: BR (occurrence: BR)
  Receive Date: 20210215
  Receipt Date: 20210218
  Transmission Date: 20210420
  Serious: Yes (Death, Other)
  Sender: FDA-Public Use
  Company Number: BR-ROCHE-2724397

PATIENT
  Age: 36 Year
  Sex: Male
  Weight: 150 kg

DRUGS (67)
  1. REMDESIVIR. [Suspect]
     Active Substance: REMDESIVIR
     Indication: COVID-19 PNEUMONIA
     Dosage: THE VOLUME OF LAST REMDESIVIR ADMINISTERED PRIOR TO AE ONSET: 100 ML?THE DATE OF MOST RECENT DOSE OF
     Route: 042
     Dates: start: 20201120
  2. AMLODIPINE [Concomitant]
     Active Substance: AMLODIPINE BESYLATE
     Indication: HYPERTENSION
     Dates: start: 20201119, end: 20201123
  3. CARVEDILOL. [Concomitant]
     Active Substance: CARVEDILOL
     Dates: start: 20201119, end: 20201122
  4. CEFTAZIDIME. [Concomitant]
     Active Substance: CEFTAZIDIME
     Indication: COVID-19
     Dates: start: 20201124, end: 20201124
  5. DEXAMETHASONE. [Concomitant]
     Active Substance: DEXAMETHASONE
     Indication: COVID-19
  6. ENOXAPARIN [Concomitant]
     Active Substance: ENOXAPARIN
     Dates: start: 20201130, end: 20201201
  7. SPIRONOLACTONE. [Concomitant]
     Active Substance: SPIRONOLACTONE
     Indication: HYPERTENSION
     Dates: start: 20201117, end: 20201119
  8. OXYGEN. [Concomitant]
     Active Substance: OXYGEN
     Dosage: 24?NOV?2020, 23?NOV?2020,
     Route: 007
     Dates: start: 20201123
  9. OXYGEN. [Concomitant]
     Active Substance: OXYGEN
     Dosage: 40 L/MIN
     Route: 055
     Dates: start: 20201120
  10. HYPROMELLOSE [Concomitant]
     Active Substance: HYPROMELLOSES
     Dosage: 1 GTT EYE LUBRICATION
     Dates: start: 20201119, end: 20201202
  11. TOCILIZUMAB. [Suspect]
     Active Substance: TOCILIZUMAB
     Indication: COVID-19 PNEUMONIA
     Dosage: THE START TIME OF MOST RECENT DOSE OF BLINDED TOCILIZUMAB PRIOR TO AE ONSET: 17:20
     Route: 042
     Dates: start: 20201120
  12. FUROSEMIDE. [Concomitant]
     Active Substance: FUROSEMIDE
     Dates: start: 20201121, end: 20201121
  13. INSULIN REGULAR [Concomitant]
     Active Substance: INSULIN NOS
     Indication: DIABETES MELLITUS
     Dates: start: 20201117, end: 20201117
  14. INSULIN REGULAR [Concomitant]
     Active Substance: INSULIN NOS
     Dates: start: 20201119, end: 20201122
  15. VASOPRESSIN. [Concomitant]
     Active Substance: VASOPRESSIN
     Indication: COVID-19
     Dates: start: 20201129, end: 20201202
  16. OXYGEN. [Concomitant]
     Active Substance: OXYGEN
     Dosage: 26?NOV?2020
     Dates: start: 20201127
  17. AMLODIPINE [Concomitant]
     Active Substance: AMLODIPINE BESYLATE
     Dates: start: 2000, end: 20201116
  18. CEFTAZIDIME. [Concomitant]
     Active Substance: CEFTAZIDIME
     Dates: start: 20201125, end: 20201127
  19. FENOTEROL [Concomitant]
     Active Substance: FENOTEROL
     Indication: COVID-19
     Dates: start: 20201119, end: 20201201
  20. FENTANYL. [Concomitant]
     Active Substance: FENTANYL
     Indication: SEDATION
     Dates: start: 20201126, end: 20201126
  21. INSULIN REGULAR [Concomitant]
     Active Substance: INSULIN NOS
     Dates: start: 20021117, end: 20201122
  22. INSULIN REGULAR [Concomitant]
     Active Substance: INSULIN NOS
     Dates: start: 20201120, end: 20201124
  23. SIMVASTATIN. [Concomitant]
     Active Substance: SIMVASTATIN
     Indication: DYSLIPIDAEMIA
     Dates: start: 2000, end: 20201118
  24. ACETYLSALICYLIC ACID [Concomitant]
     Active Substance: ASPIRIN
     Indication: CEREBROVASCULAR ACCIDENT
     Dates: start: 20201118, end: 20201118
  25. CARVEDILOL. [Concomitant]
     Active Substance: CARVEDILOL
     Dates: start: 2000, end: 20201116
  26. IPRATROPIUM [Concomitant]
     Active Substance: IPRATROPIUM
     Indication: COVID-19
     Dates: start: 20201121, end: 20201201
  27. ACETYLSALICYLIC ACID [Concomitant]
     Active Substance: ASPIRIN
     Indication: CEREBROVASCULAR ACCIDENT
     Dates: start: 2018, end: 20201116
  28. OXYGEN. [Concomitant]
     Active Substance: OXYGEN
     Dosage: 29?NOV?2020
     Route: 007
     Dates: start: 20201130
  29. OXYGEN. [Concomitant]
     Active Substance: OXYGEN
     Dosage: 40 L/MIN
     Route: 055
     Dates: start: 20201120
  30. TEICOPLANIN [Concomitant]
     Active Substance: TEICOPLANIN
     Dates: start: 20201128, end: 20201130
  31. TEICOPLANIN [Concomitant]
     Active Substance: TEICOPLANIN
     Dosage: LEFT BASE ATELECTASIS
     Dates: start: 20201201, end: 20201201
  32. HYDROCORTISONE. [Concomitant]
     Active Substance: HYDROCORTISONE
     Dates: start: 20201127, end: 20201130
  33. CISATRACURIUM. [Concomitant]
     Active Substance: CISATRACURIUM
     Dates: start: 20201129, end: 20201201
  34. ENOXAPARIN [Concomitant]
     Active Substance: ENOXAPARIN
     Dates: start: 20201124, end: 20201127
  35. FENTANYL. [Concomitant]
     Active Substance: FENTANYL
     Dates: start: 20201201, end: 20201202
  36. NOREPINEPHRINE. [Concomitant]
     Active Substance: NOREPINEPHRINE
     Indication: HAEMODYNAMIC INSTABILITY
     Dates: start: 20201130, end: 20201202
  37. OMEPRAZOLE. [Concomitant]
     Active Substance: OMEPRAZOLE
     Dates: start: 2000, end: 20201116
  38. OXYGEN. [Concomitant]
     Active Substance: OXYGEN
     Dosage: 01?DEC?2020
     Route: 007
     Dates: start: 20201125
  39. LIDOCAINE. [Concomitant]
     Active Substance: LIDOCAINE
     Dosage: LOCAL ANESTHESIA FOR PROCEDURE
     Dates: start: 20201119, end: 20201119
  40. SODIUM CHLORIDE. [Concomitant]
     Active Substance: SODIUM CHLORIDE
     Dosage: USUAL CONTRIBUTION
     Dates: start: 20201201, end: 20201201
  41. DIPYRONE [Concomitant]
     Active Substance: DIPYRONE
     Indication: HEADACHE
     Dates: start: 20201118, end: 20201118
  42. NORADRENALINE [Concomitant]
     Active Substance: NOREPINEPHRINE
     Dates: start: 20201123, end: 20201128
  43. DEXAMETHASONE. [Concomitant]
     Active Substance: DEXAMETHASONE
     Indication: SEVERE ACUTE RESPIRATORY SYNDROME
     Dates: start: 20201118, end: 20201127
  44. SPIRONOLACTONE. [Concomitant]
     Active Substance: SPIRONOLACTONE
     Dates: start: 20201120, end: 20201123
  45. SPIRONOLACTONE. [Concomitant]
     Active Substance: SPIRONOLACTONE
     Dates: start: 2000, end: 20201116
  46. FENTANYL. [Concomitant]
     Active Substance: FENTANYL
     Dates: start: 20201129, end: 20201129
  47. FUROSEMIDE. [Concomitant]
     Active Substance: FUROSEMIDE
     Dates: start: 20201201, end: 20201202
  48. OXYGEN. [Concomitant]
     Active Substance: OXYGEN
     Dates: start: 20201128
  49. OXYGEN. [Concomitant]
     Active Substance: OXYGEN
     Route: 007
     Dates: start: 20201124
  50. OXACILLIN [Concomitant]
     Active Substance: OXACILLIN SODIUM
     Dosage: LEFT BASE ATELECTASIS
     Dates: start: 20201126, end: 20201129
  51. AZITHROMYCIN ANHYDROUS. [Concomitant]
     Active Substance: AZITHROMYCIN ANHYDROUS
     Indication: COVID-19
     Dates: start: 20201124, end: 20201127
  52. CARVEDILOL. [Concomitant]
     Active Substance: CARVEDILOL
     Indication: HYPERTENSION
     Dates: start: 20201117, end: 20201119
  53. ENOXAPARIN [Concomitant]
     Active Substance: ENOXAPARIN
     Indication: COVID-19
     Dates: start: 20201117, end: 20201124
  54. ENOXAPARIN [Concomitant]
     Active Substance: ENOXAPARIN
     Dates: start: 20201124, end: 20201127
  55. ENOXAPARIN [Concomitant]
     Active Substance: ENOXAPARIN
     Dates: start: 20201130, end: 20201201
  56. HYDRALAZINE [Concomitant]
     Active Substance: HYDRALAZINE HYDROCHLORIDE
     Dates: start: 2000, end: 20201116
  57. MIDAZOLAM. [Concomitant]
     Active Substance: MIDAZOLAM
     Indication: SEDATION
     Dates: start: 20201129, end: 20201202
  58. SODIUM CHLORIDE. [Concomitant]
     Active Substance: SODIUM CHLORIDE
     Dosage: USUAL CONTRIBUTION
     Dates: start: 20201119, end: 20201119
  59. SODIUM CHLORIDE. [Concomitant]
     Active Substance: SODIUM CHLORIDE
     Dosage: USUAL CONTRIBUTION
     Dates: start: 20201126, end: 20201126
  60. HYDROCORTISONE. [Concomitant]
     Active Substance: HYDROCORTISONE
     Dates: start: 20201130, end: 20201202
  61. CISATRACURIUM. [Concomitant]
     Active Substance: CISATRACURIUM
     Indication: SEDATION
     Dates: start: 20201123, end: 20201123
  62. FUROSEMIDE. [Concomitant]
     Active Substance: FUROSEMIDE
     Indication: HYPERTENSION
     Dates: start: 20201119, end: 20201123
  63. HYDRALAZINE [Concomitant]
     Active Substance: HYDRALAZINE HYDROCHLORIDE
     Indication: HYPERTENSION
     Dates: start: 20201117, end: 20201120
  64. INSULIN REGULAR [Concomitant]
     Active Substance: INSULIN NOS
     Dates: start: 20201121, end: 20201122
  65. OMEPRAZOLE. [Concomitant]
     Active Substance: OMEPRAZOLE
     Indication: GASTROOESOPHAGEAL REFLUX DISEASE
     Dates: start: 20201120, end: 20201201
  66. LOSARTAN. [Concomitant]
     Active Substance: LOSARTAN
     Indication: HYPERTENSION
     Dates: start: 2000, end: 20201116
  67. OXYGEN. [Concomitant]
     Active Substance: OXYGEN
     Dosage: 100 L/MIN : 22?NOV?2020, 29?NOV?2020, 20?NOV?2020, 25?NOV?2020, 27?NOV?2020
     Route: 055
     Dates: start: 20201121

REACTIONS (2)
  - Renal impairment [Not Recovered/Not Resolved]
  - Pneumonia [Fatal]

NARRATIVE: CASE EVENT DATE: 20201123
